FAERS Safety Report 18885943 (Version 1)
Quarter: 2021Q1

REPORT INFORMATION
  Report Type: Spontaneous
  Country: US (occurrence: US)
  Receive Date: 20210212
  Receipt Date: 20210212
  Transmission Date: 20210420
  Serious: Yes (Life-Threatening, Disabling, Other)
  Sender: FDA-Public Use
  Company Number: None

PATIENT
  Age: 49 Year
  Sex: Male
  Weight: 130.5 kg

DRUGS (8)
  1. VITAMIN B12 [Concomitant]
     Active Substance: CYANOCOBALAMIN
  2. TRAZODONE [Concomitant]
     Active Substance: TRAZODONE HYDROCHLORIDE
  3. TRINTELLIX [Suspect]
     Active Substance: VORTIOXETINE HYDROBROMIDE
     Indication: ANXIETY
     Dosage: ?          QUANTITY:1 TABLET(S);?
     Route: 048
     Dates: start: 20210128, end: 20210204
  4. FISH OIL [Concomitant]
     Active Substance: FISH OIL
  5. LAMICTAL [Concomitant]
     Active Substance: LAMOTRIGINE
  6. VIT D [Concomitant]
     Active Substance: VITAMIN D NOS
  7. CBD [Concomitant]
     Active Substance: CANNABIDIOL
  8. CPAP [Concomitant]
     Active Substance: DEVICE

REACTIONS (5)
  - Chills [None]
  - Abnormal dreams [None]
  - Headache [None]
  - Withdrawal syndrome [None]
  - Agitation [None]

NARRATIVE: CASE EVENT DATE: 20210201
